FAERS Safety Report 11907147 (Version 3)
Quarter: 2016Q1

REPORT INFORMATION
  Report Type: Report from Study
  Country: US (occurrence: US)
  Receive Date: 20160111
  Receipt Date: 20160111
  Transmission Date: 20160526
  Serious: No
  Sender: FDA-Public Use
  Company Number: US-ABBVIE-15P-163-1445179-00

PATIENT
  Age: 61 Year
  Sex: Female
  Weight: 71.28 kg

DRUGS (3)
  1. VIEKIRA PAK [Suspect]
     Active Substance: DASABUVIR\OMBITASVIR\PARITAPREVIR\RITONAVIR
     Indication: HEPATITIS C
     Dosage: 2 PINK, 1 BEIGE TAB IN AM; 1 BEIGE IN EVENING PO
     Route: 048
     Dates: start: 20150707
  2. BENADRYL [Concomitant]
     Active Substance: DIPHENHYDRAMINE HYDROCHLORIDE
     Indication: PRODUCT USED FOR UNKNOWN INDICATION
     Route: 065
  3. ALPRAZOLAM. [Concomitant]
     Active Substance: ALPRAZOLAM
     Indication: PRODUCT USED FOR UNKNOWN INDICATION
     Route: 065

REACTIONS (11)
  - Decreased appetite [Unknown]
  - Constipation [Unknown]
  - Pruritus generalised [Unknown]
  - Fatigue [Unknown]
  - Asthenia [Unknown]
  - Anger [Unknown]
  - Weight increased [Unknown]
  - Depression [Unknown]
  - Mood altered [Unknown]
  - Dysgeusia [Unknown]
  - Food craving [Unknown]

NARRATIVE: CASE EVENT DATE: 201507
